FAERS Safety Report 12548427 (Version 3)
Quarter: 2017Q3

REPORT INFORMATION
  Report Type: Spontaneous
  Country: US (occurrence: US)
  Receive Date: 20160712
  Receipt Date: 20170807
  Transmission Date: 20171127
  Serious: Yes (Hospitalization)
  Sender: FDA-Public Use
  Company Number: US-AUROBINDO-AUR-APL-2016-08787

PATIENT
  Age: 11 Month
  Sex: Male

DRUGS (1)
  1. METHADONE [Suspect]
     Active Substance: METHADONE HYDROCHLORIDE
     Indication: PRODUCT USED FOR UNKNOWN INDICATION
     Route: 065

REACTIONS (16)
  - Respiratory failure [Recovered/Resolved]
  - Hyperinsulinaemic hypoglycaemia [Recovered/Resolved]
  - Dyspnoea [Recovered/Resolved]
  - Miosis [Recovered/Resolved]
  - Cyanosis [Recovered/Resolved]
  - Blood glucose decreased [Recovered/Resolved]
  - Somnolence [Recovered/Resolved]
  - Hypotension [Recovered/Resolved]
  - Mental status changes [Recovered/Resolved]
  - Bradypnoea [Recovered/Resolved]
  - Rhinorrhoea [Recovered/Resolved]
  - Jaw disorder [Recovered/Resolved]
  - Muscle contractions involuntary [Recovered/Resolved]
  - Blood insulin increased [Recovered/Resolved]
  - Unresponsive to stimuli [Recovered/Resolved]
  - Pyrexia [Recovered/Resolved]
